FAERS Safety Report 22623895 (Version 1)
Quarter: 2023Q2

REPORT INFORMATION
  Report Type: Spontaneous
  Country: US (occurrence: US)
  Receive Date: 20230621
  Receipt Date: 20230621
  Transmission Date: 20230721
  Serious: No
  Sender: FDA-Public Use
  Company Number: US-PROVENTION BIO, INC.-US-PRAG-23-00017

PATIENT
  Age: 10 Year
  Sex: Female
  Weight: 38.7 kg

DRUGS (7)
  1. TZIELD [Suspect]
     Active Substance: TEPLIZUMAB-MZWV
     Indication: Diabetes prophylaxis
     Dosage: 81.25 MICROGRAM, SINGLE
     Route: 042
     Dates: start: 20230313, end: 20230313
  2. TZIELD [Suspect]
     Active Substance: TEPLIZUMAB-MZWV
     Dosage: 156.25 MICROGRAM, SINGLE
     Route: 042
     Dates: start: 20230314, end: 20230314
  3. TZIELD [Suspect]
     Active Substance: TEPLIZUMAB-MZWV
     Dosage: 312.5 MICROGRAM, SINGLE
     Route: 042
     Dates: start: 20230315, end: 20230315
  4. TZIELD [Suspect]
     Active Substance: TEPLIZUMAB-MZWV
     Dosage: 625 MICROGRAM, SINGLE
     Route: 042
     Dates: start: 20230316, end: 20230316
  5. TZIELD [Suspect]
     Active Substance: TEPLIZUMAB-MZWV
     Dosage: 1287.5 MICROGRAM, SINGLE
     Route: 042
     Dates: start: 20230317, end: 20230326
  6. LANTUS [Concomitant]
     Active Substance: INSULIN GLARGINE
     Indication: Product used for unknown indication
  7. HUMALOG [Concomitant]
     Active Substance: INSULIN LISPRO
     Indication: Product used for unknown indication

REACTIONS (4)
  - Hyperglycaemia [Recovering/Resolving]
  - Insulin therapy [Unknown]
  - Headache [Recovered/Resolved]
  - Fatigue [Recovered/Resolved]

NARRATIVE: CASE EVENT DATE: 20230313
